FAERS Safety Report 14167758 (Version 1)
Quarter: 2017Q4

REPORT INFORMATION
  Report Type: Spontaneous
  Country: US (occurrence: US)
  Receive Date: 20171107
  Receipt Date: 20171107
  Transmission Date: 20180321
  Serious: No
  Sender: FDA-Public Use
  Company Number: US-SA-2017SA080517

PATIENT
  Age: 61 Year
  Sex: Female

DRUGS (4)
  1. TOUJEO [Suspect]
     Active Substance: INSULIN GLARGINE
     Indication: TYPE 2 DIABETES MELLITUS
     Dosage: DOSE: 10-15 UNITS
     Route: 051
  2. SOLOSTAR [Concomitant]
     Active Substance: DEVICE
  3. TOUJEO [Suspect]
     Active Substance: INSULIN GLARGINE
     Indication: TYPE 2 DIABETES MELLITUS
     Dosage: DOSE:5 UNIT(S)
     Route: 051
     Dates: start: 201701
  4. SOLOSTAR [Concomitant]
     Active Substance: DEVICE
     Dates: start: 201701

REACTIONS (3)
  - Blood glucose increased [Unknown]
  - Product use issue [Unknown]
  - Blood glucose decreased [Recovered/Resolved]
